FAERS Safety Report 5073625-0 (Version None)
Quarter: 2006Q2

REPORT INFORMATION
  Report Type: 
  Country: None (occurrence: None)
  Receive Date: 20060605
  Receipt Date: 20060714
  Transmission Date: 20061013
  Serious: Yes (Hospitalization)
  Sender: FDA-Public Use
  Company Number: 2006BH011545

PATIENT
  Age: 59 Year
  Sex: Male
  Weight: 78.0187 kg

DRUGS (9)
  1. ADVATE [Suspect]
     Indication: FACTOR VIII DEFICIENCY
     Dosage: 3000 UNITS; ONCE; UNK
     Dates: start: 20060609, end: 20060609
  2. ADVATE [Suspect]
  3. ADVATE [Suspect]
  4. KALETRA [Concomitant]
  5. VIRIAD [Concomitant]
  6. DIDANOSINE [Concomitant]
  7. HYZAAR [Concomitant]
  8. PERCOCET [Concomitant]
  9. AMBIEN [Concomitant]

REACTIONS (3)
  - HYPERHIDROSIS [None]
  - LOSS OF CONSCIOUSNESS [None]
  - PERICARDITIS [None]
